FAERS Safety Report 6309458-4 (Version None)
Quarter: 2009Q3

REPORT INFORMATION
  Report Type: 
  Country: None (occurrence: None)
  Receive Date: 20090814
  Receipt Date: 20090807
  Transmission Date: 20100115
  Serious: Yes (Hospitalization)
  Sender: FDA-Public Use
  Company Number: CH-JNJFOC-20090801987

PATIENT
  Age: 78 Year
  Sex: Female

DRUGS (7)
  1. HALDOL [Suspect]
     Indication: DRUG USE FOR UNKNOWN INDICATION
     Route: 048
  2. AMITRIPTYLINE HCL [Suspect]
     Route: 048
  3. AMITRIPTYLINE HCL [Suspect]
     Route: 048
  4. AMITRIPTYLINE HCL [Suspect]
     Indication: DEPRESSION
     Route: 048
  5. DEPAKENE [Concomitant]
     Indication: DEPRESSION
     Route: 048
  6. LAMICTAL [Concomitant]
     Indication: DEPRESSION
     Route: 048
  7. ASPIRIN [Concomitant]
     Route: 048

REACTIONS (1)
  - ANGINA PECTORIS [None]
